FAERS Safety Report 15691565 (Version 2)
Quarter: 2019Q2

REPORT INFORMATION
  Report Type: Report from Study
  Country: BR (occurrence: BR)
  Receive Date: 20181205
  Receipt Date: 20190619
  Transmission Date: 20190711
  Serious: Yes (Hospitalization, Other)
  Sender: FDA-Public Use
  Company Number: PHHY2018BR161737

PATIENT
  Age: 26 Year
  Sex: Female
  Weight: 115 kg

DRUGS (2)
  1. COSENTYX [Suspect]
     Active Substance: SECUKINUMAB
     Dosage: 150 MG, QMO
     Route: 058
     Dates: start: 20181031
  2. COSENTYX [Suspect]
     Active Substance: SECUKINUMAB
     Indication: PSORIATIC ARTHROPATHY
     Dosage: 150 MG, QMO
     Route: 058
     Dates: start: 20181002

REACTIONS (27)
  - Speech disorder [Unknown]
  - Oropharyngeal pain [Unknown]
  - Arthralgia [Not Recovered/Not Resolved]
  - Pain in extremity [Not Recovered/Not Resolved]
  - Gait disturbance [Recovering/Resolving]
  - Cardiac disorder [Recovering/Resolving]
  - Dyspnoea [Recovering/Resolving]
  - Fall [Recovering/Resolving]
  - Peripheral swelling [Not Recovered/Not Resolved]
  - Overweight [Not Recovered/Not Resolved]
  - Mobility decreased [Unknown]
  - Joint swelling [Recovering/Resolving]
  - Dry mouth [Unknown]
  - Dysphagia [Unknown]
  - Therapeutic product effect incomplete [Not Recovered/Not Resolved]
  - Ligament sprain [Recovering/Resolving]
  - Influenza [Unknown]
  - Sleep disorder [Recovering/Resolving]
  - Malaise [Recovering/Resolving]
  - Pain [Not Recovered/Not Resolved]
  - Dysstasia [Recovering/Resolving]
  - Chest pain [Recovering/Resolving]
  - Tonsillitis [Unknown]
  - Pharyngeal inflammation [Unknown]
  - Psoriatic arthropathy [Not Recovered/Not Resolved]
  - Chest discomfort [Recovering/Resolving]
  - Aptyalism [Unknown]

NARRATIVE: CASE EVENT DATE: 20181114
